FAERS Safety Report 16716889 (Version 5)
Quarter: 2019Q4

REPORT INFORMATION
  Report Type: Spontaneous
  Country: FR (occurrence: FR)
  Receive Date: 20190819
  Receipt Date: 20191107
  Transmission Date: 20200122
  Serious: Yes (Hospitalization, Other)
  Sender: FDA-Public Use
  Company Number: FR-NOVOPROD-678515

PATIENT
  Age: 29 Year
  Sex: Female
  Weight: 81 kg

DRUGS (6)
  1. TRAMADOL. [Concomitant]
     Active Substance: TRAMADOL
     Indication: PRODUCT USED FOR UNKNOWN INDICATION
     Dosage: 100 MG, QD (100 MG IN THE MORNING)
     Route: 065
  2. NOVORAPID [Suspect]
     Active Substance: INSULIN ASPART
     Indication: TYPE 1 DIABETES MELLITUS
     Dosage: UNK
     Route: 058
     Dates: start: 2013
  3. NOVORAPID [Suspect]
     Active Substance: INSULIN ASPART
     Dosage: 51 IU, QD
     Route: 058
     Dates: start: 201808
  4. NOVORAPID [Suspect]
     Active Substance: INSULIN ASPART
     Dosage: CHANGED THE BOX WITH A NEW BATCH NUMBER
     Route: 058
  5. OPTIMIZETTE [Concomitant]
     Active Substance: DESOGESTREL
     Indication: CONTRACEPTION
     Dosage: UNK
  6. ESOMEPRAZOLE. [Concomitant]
     Active Substance: ESOMEPRAZOLE MAGNESIUM
     Indication: PRODUCT USED FOR UNKNOWN INDICATION
     Dosage: 20 MG, QD (20 MG IN THE EVENING)
     Route: 065

REACTIONS (7)
  - Diabetic ketosis [Recovered/Resolved]
  - Product leakage [Unknown]
  - Product physical issue [Unknown]
  - Product physical issue [Unknown]
  - Product leakage [Unknown]
  - Diabetic ketoacidosis [Recovered/Resolved]
  - Gastrointestinal disorder [Recovered/Resolved]

NARRATIVE: CASE EVENT DATE: 20190804
